FAERS Safety Report 15427571 (Version 1)
Quarter: 2018Q3

REPORT INFORMATION
  Report Type: Report from Study
  Country: US (occurrence: US)
  Receive Date: 20180925
  Receipt Date: 20180925
  Transmission Date: 20181010
  Serious: Yes (Life-Threatening, Other)
  Sender: FDA-Public Use
  Company Number: US-GILEAD-2018-0358245

PATIENT
  Sex: Male
  Weight: 69.2 kg

DRUGS (54)
  1. OXYGEN. [Concomitant]
     Active Substance: OXYGEN
  2. POTASSIUM PHOSPHATE                /00493501/ [Concomitant]
     Active Substance: POTASSIUM PHOSPHATE, DIBASIC
  3. PROTONIX                           /00661201/ [Concomitant]
     Active Substance: OMEPRAZOLE
  4. DEXAMETHASONE. [Concomitant]
     Active Substance: DEXAMETHASONE
     Dosage: 10 MG, QID
     Route: 042
     Dates: start: 20180821
  5. ETOMIDATE. [Concomitant]
     Active Substance: ETOMIDATE
  6. FILGRASTIM [Concomitant]
     Active Substance: FILGRASTIM
  7. DIPHENHYDRAMINE. [Concomitant]
     Active Substance: DIPHENHYDRAMINE
  8. KEPPRA [Concomitant]
     Active Substance: LEVETIRACETAM
     Dosage: 1000 MG, BID
  9. CYCLOPHOSPHAMIDE. [Suspect]
     Active Substance: CYCLOPHOSPHAMIDE
     Indication: BONE MARROW CONDITIONING REGIMEN
     Dosage: 500 MG/M2, QD
     Route: 042
     Dates: start: 20180808, end: 20180810
  10. METHYLPHENIDATE. [Concomitant]
     Active Substance: METHYLPHENIDATE
  11. NALOXEGOL [Concomitant]
     Active Substance: NALOXEGOL
  12. RED BLOOD CELLS [Concomitant]
     Active Substance: HUMAN RED BLOOD CELL
  13. LEVOFLOXACIN. [Concomitant]
     Active Substance: LEVOFLOXACIN
  14. BACTRIM DS [Concomitant]
     Active Substance: SULFAMETHOXAZOLE\TRIMETHOPRIM
  15. MICAFUNGIN [Concomitant]
     Active Substance: MICAFUNGIN
  16. CALCIUM GLUCONATE. [Concomitant]
     Active Substance: CALCIUM GLUCONATE
  17. MEROPENEM. [Concomitant]
     Active Substance: MEROPENEM
  18. RITALIN [Concomitant]
     Active Substance: METHYLPHENIDATE HYDROCHLORIDE
  19. CEFTRIAXONE. [Concomitant]
     Active Substance: CEFTRIAXONE
  20. AXICABTAGENE CILOLEUCEL [Suspect]
     Active Substance: AXICABTAGENE CILOLEUCEL
     Indication: DIFFUSE LARGE B-CELL LYMPHOMA REFRACTORY
     Dosage: 68 ML, ONCE
     Route: 042
     Dates: start: 20180813, end: 20180813
  21. PLASMALYTE [Concomitant]
     Active Substance: ELECTROLYTES NOS
  22. LEVETIRACETAM. [Concomitant]
     Active Substance: LEVETIRACETAM
  23. CEFEPIME [Concomitant]
     Active Substance: CEFEPIME HYDROCHLORIDE
  24. ENOXAPARIN [Concomitant]
     Active Substance: ENOXAPARIN
  25. AMBIEN [Concomitant]
     Active Substance: ZOLPIDEM TARTRATE
  26. ONDANSETRON [Concomitant]
     Active Substance: ONDANSETRON
  27. PANTOPRAZOLE [Concomitant]
     Active Substance: PANTOPRAZOLE
  28. ACYCLOVIR                          /00587301/ [Concomitant]
     Active Substance: ACYCLOVIR
  29. PLATELETS [Concomitant]
     Active Substance: HUMAN PLATELET, ALLOGENIC
  30. DOCUSATE W/SENNOSIDE A+B [Concomitant]
  31. MIRALAX [Concomitant]
     Active Substance: POLYETHYLENE GLYCOL 3350
  32. SIMETHICONE (DIMETHICONE) [Concomitant]
     Active Substance: DIMETHICONE
  33. FLUDARABINE [Suspect]
     Active Substance: FLUDARABINE PHOSPHATE
     Indication: BONE MARROW CONDITIONING REGIMEN
     Dosage: 30 MG/M2, QD
     Route: 042
     Dates: start: 20180808, end: 20180810
  34. DEXMEDETOMIDINE. [Concomitant]
     Active Substance: DEXMEDETOMIDINE
  35. FENTANYL. [Concomitant]
     Active Substance: FENTANYL
  36. SODIUM BICARBONATE. [Concomitant]
     Active Substance: SODIUM BICARBONATE
  37. CHLORHEXIDINE [Concomitant]
     Active Substance: CHLORHEXIDINE
  38. PROCHLORPERAZINE. [Concomitant]
     Active Substance: PROCHLORPERAZINE
  39. ACETAMINOPHEN. [Concomitant]
     Active Substance: ACETAMINOPHEN
  40. FAMOTIDINE. [Concomitant]
     Active Substance: FAMOTIDINE
  41. URSODIOL. [Concomitant]
     Active Substance: URSODIOL
  42. MIRTAZAPINE. [Concomitant]
     Active Substance: MIRTAZAPINE
  43. FLUCONAZOLE. [Concomitant]
     Active Substance: FLUCONAZOLE
  44. ALLOPURINOL. [Concomitant]
     Active Substance: ALLOPURINOL
  45. PROPOFOL. [Concomitant]
     Active Substance: PROPOFOL
  46. METHYLPREDNISOLONE. [Concomitant]
     Active Substance: METHYLPREDNISOLONE
  47. VANCOMYCIN [Concomitant]
     Active Substance: VANCOMYCIN
  48. POTASSIUM CHLORIDE. [Concomitant]
     Active Substance: POTASSIUM CHLORIDE
  49. SODIUM PHOSPHATE [Concomitant]
     Active Substance: SODIUM PHOSPHATE
  50. POSACONAZOLE [Concomitant]
     Active Substance: POSACONAZOLE
  51. MAGNESIUM SULFATE. [Concomitant]
     Active Substance: MAGNESIUM SULFATE
  52. SODIUM CHLORIDE. [Concomitant]
     Active Substance: SODIUM CHLORIDE
  53. MULTIVITAMIN                       /00097801/ [Concomitant]
     Active Substance: VITAMINS
  54. COLACE [Concomitant]
     Active Substance: DOCUSATE SODIUM

REACTIONS (5)
  - Encephalopathy [Recovered/Resolved]
  - Pyrexia [Recovered/Resolved]
  - Pyrexia [Recovered/Resolved]
  - Cytokine release syndrome [Recovered/Resolved]
  - Hypotension [Recovered/Resolved]

NARRATIVE: CASE EVENT DATE: 20180816
